FAERS Safety Report 18388944 (Version 3)
Quarter: 2020Q4

REPORT INFORMATION
  Report Type: Spontaneous
  Country: CH (occurrence: CH)
  Receive Date: 20201016
  Receipt Date: 20201206
  Transmission Date: 20210114
  Serious: Yes (Hospitalization, Other)
  Sender: FDA-Public Use
  Company Number: CH-NOVOPROD-758459

PATIENT
  Age: 86 Year
  Sex: Male

DRUGS (1)
  1. GLUCAGEN HYPOKIT [Suspect]
     Active Substance: GLUCAGON HYDROCHLORIDE
     Indication: HYPOGLYCAEMIA
     Dosage: UNK
     Route: 065

REACTIONS (2)
  - Hypoglycaemic coma [Recovered/Resolved]
  - Product packaging quantity issue [Unknown]
